FAERS Safety Report 6834493-7 (Version None)
Quarter: 2010Q3

REPORT INFORMATION
  Report Type: 
  Country: None (occurrence: None)
  Receive Date: 20100712
  Receipt Date: 20070615
  Transmission Date: 20110219
  Serious: No
  Sender: FDA-Public Use
  Company Number: US-PFIZER INC-2007026518

PATIENT
  Sex: Female
  Weight: 53.07 kg

DRUGS (4)
  1. CHANTIX [Suspect]
     Indication: SMOKING CESSATION THERAPY
     Dates: start: 20070321
  2. EVISTA [Concomitant]
     Indication: OSTEOPOROSIS
  3. SERTRALINE HCL [Concomitant]
  4. ZYRTEC-D 12 HOUR [Concomitant]

REACTIONS (3)
  - DYSGEUSIA [None]
  - NAUSEA [None]
  - TOBACCO USER [None]
